FAERS Safety Report 7437311-1 (Version None)
Quarter: 2011Q2

REPORT INFORMATION
  Report Type: 
  Country: None (occurrence: None)
  Receive Date: 20110426
  Receipt Date: 20110419
  Transmission Date: 20111010
  Serious: Yes (Death, Other)
  Sender: FDA-Public Use
  Company Number: FR-GENZYME-FLUD-1001087

PATIENT

DRUGS (4)
  1. THYMOGLOBULIN [Suspect]
     Indication: STEM CELL TRANSPLANT
     Dosage: UNK
     Route: 065
  2. FLUDARA [Suspect]
     Indication: MYELOFIBROSIS
  3. FLUDARA [Suspect]
     Indication: STEM CELL TRANSPLANT
     Dosage: UNK
     Route: 065
  4. THYMOGLOBULIN [Suspect]
     Indication: MYELOFIBROSIS

REACTIONS (9)
  - HAEMORRHAGE [None]
  - CARDIAC ARREST [None]
  - TRANSPLANT FAILURE [None]
  - MULTI-ORGAN FAILURE [None]
  - ACUTE GRAFT VERSUS HOST DISEASE [None]
  - CHRONIC GRAFT VERSUS HOST DISEASE [None]
  - NEOPLASM MALIGNANT [None]
  - INFECTION [None]
  - GRAFT VERSUS HOST DISEASE [None]
